FAERS Safety Report 6657981-5 (Version None)
Quarter: 2010Q1

REPORT INFORMATION
  Report Type: 
  Country: None (occurrence: None)
  Receive Date: 20100330
  Receipt Date: 20100324
  Transmission Date: 20100710
  Serious: Yes (Other)
  Sender: FDA-Public Use
  Company Number: B0643082A

PATIENT
  Sex: Female

DRUGS (2)
  1. ALLI [Suspect]
     Route: 065
     Dates: start: 20100310
  2. INSULIN [Concomitant]

REACTIONS (3)
  - BLOOD GLUCOSE FLUCTUATION [None]
  - BLOOD INSULIN DECREASED [None]
  - CONVULSION [None]
